FAERS Safety Report 23186476 (Version 4)
Quarter: 2025Q4

REPORT INFORMATION
  Report Type: Spontaneous
  Country: US (occurrence: US)
  Receive Date: 20231115
  Receipt Date: 20251016
  Transmission Date: 20260117
  Serious: No
  Sender: SANOFI AVENTIS
  Company Number: US-SA-SAC20231107001354

PATIENT
  Age: 37 Year
  Sex: Female

DRUGS (1)
  1. DUPIXENT [Suspect]
     Active Substance: DUPILUMAB
     Indication: Nasal polyps
     Dosage: 300 MG, QOW
     Route: 058
     Dates: end: 202310

REACTIONS (16)
  - Flushing [Not Recovered/Not Resolved]
  - Abdominal pain upper [Unknown]
  - Dyspnoea [Unknown]
  - Feeling abnormal [Unknown]
  - Sunburn [Unknown]
  - Fatigue [Unknown]
  - Weight increased [Unknown]
  - Injection site mass [Unknown]
  - Injection site irritation [Unknown]
  - Erythema [Recovered/Resolved]
  - Vision blurred [Unknown]
  - Dizziness [Not Recovered/Not Resolved]
  - Headache [Unknown]
  - Arthralgia [Unknown]
  - Injection site swelling [Unknown]
  - Injection site erythema [Unknown]
